FAERS Safety Report 17450244 (Version 1)
Quarter: 2020Q1

REPORT INFORMATION
  Report Type: Spontaneous
  Country: US (occurrence: US)
  Receive Date: 20200210
  Receipt Date: 20200210
  Transmission Date: 20200409
  Serious: Yes (Hospitalization)
  Sender: FDA-Public Use
  Company Number: None

PATIENT
  Age: 54 Year
  Sex: Female

DRUGS (34)
  1. MIDODRINE [Concomitant]
     Active Substance: MIDODRINE
  2. DIAZEPAM. [Concomitant]
     Active Substance: DIAZEPAM
  3. ATENOLOL. [Concomitant]
     Active Substance: ATENOLOL
  4. AMITRIPTYLINE [Concomitant]
     Active Substance: AMITRIPTYLINE
  5. OXYCODONE [Concomitant]
     Active Substance: OXYCODONE
  6. AMANTADINE. [Concomitant]
     Active Substance: AMANTADINE HYDROCHLORIDE
  7. GLIPIZIDE. [Concomitant]
     Active Substance: GLIPIZIDE
  8. ROPINIROLE. [Concomitant]
     Active Substance: ROPINIROLE
  9. OMEPRAZOLE. [Concomitant]
     Active Substance: OMEPRAZOLE
  10. EXELON [Concomitant]
     Active Substance: RIVASTIGMINE TARTRATE
  11. ROBITUSSIN LIQ [Concomitant]
  12. DALFAMPRIDINE 10MG [Suspect]
     Active Substance: DALFAMPRIDINE
     Indication: MULTIPLE SCLEROSIS
     Dosage: ?          OTHER DOSE:1;OTHER FREQUENCY:Q12H;?
     Route: 048
     Dates: start: 20140225
  13. GABAPENTIN. [Concomitant]
     Active Substance: GABAPENTIN
  14. TIZANIDINE. [Concomitant]
     Active Substance: TIZANIDINE
  15. COPAXONE [Concomitant]
     Active Substance: GLATIRAMER ACETATE
  16. ENALAPRIL [Concomitant]
     Active Substance: ENALAPRIL
  17. DULOXETINE. [Concomitant]
     Active Substance: DULOXETINE
  18. ATORVASTATIN [Concomitant]
     Active Substance: ATORVASTATIN
  19. FARXIGA [Concomitant]
     Active Substance: DAPAGLIFLOZIN PROPANEDIOL
  20. MORPHINE [Concomitant]
     Active Substance: MORPHINE
  21. ESTRADIOL. [Concomitant]
     Active Substance: ESTRADIOL
  22. TAMIFLU [Concomitant]
     Active Substance: OSELTAMIVIR PHOSPHATE
  23. VITAMIN D [Concomitant]
     Active Substance: VITAMIN D NOS
  24. RESTASIS [Concomitant]
     Active Substance: CYCLOSPORINE
  25. ONDANSETRON [Concomitant]
     Active Substance: ONDANSETRON
  26. CENTRUM SILV TAB [Concomitant]
  27. BACLOFEN. [Concomitant]
     Active Substance: BACLOFEN
  28. NAPROXEN. [Concomitant]
     Active Substance: NAPROXEN
  29. LORATADINE. [Concomitant]
     Active Substance: LORATADINE
  30. PERCOCET [Concomitant]
     Active Substance: ACETAMINOPHEN\OXYCODONE HYDROCHLORIDE
  31. LEVOTHYROXINE. [Concomitant]
     Active Substance: LEVOTHYROXINE
  32. FLUDROCORT [Concomitant]
  33. FLUDROCORT [Concomitant]
  34. TRAZODONE [Concomitant]
     Active Substance: TRAZODONE HYDROCHLORIDE

REACTIONS (2)
  - Transient ischaemic attack [None]
  - Disease recurrence [None]

NARRATIVE: CASE EVENT DATE: 20200115
